FAERS Safety Report 8069208-0 (Version None)
Quarter: 2012Q1

REPORT INFORMATION
  Report Type: 
  Country: None (occurrence: None)
  Receive Date: 20120125
  Receipt Date: 20120113
  Transmission Date: 20120608
  Serious: Yes (Hospitalization, Other)
  Sender: FDA-Public Use
  Company Number: DE-BRISTOL-MYERS SQUIBB COMPANY-16347445

PATIENT
  Age: 84 Year
  Sex: Male
  Weight: 67 kg

DRUGS (8)
  1. PANTOPRAZOLE [Concomitant]
     Indication: HIATUS HERNIA
     Route: 048
  2. DOMPERIDONE [Concomitant]
     Indication: CONSTIPATION
     Dosage: 1DF=10 TROPFEN
     Route: 048
  3. PANTOPRAZOLE [Concomitant]
     Indication: ABDOMINAL PAIN
     Route: 048
  4. RANITIDINE [Concomitant]
     Indication: PROPHYLAXIS
     Dosage: RANITIDINE 500
     Route: 048
     Dates: start: 20120113, end: 20120113
  5. IPILIMUMAB [Suspect]
     Indication: MALIGNANT MELANOMA
     Route: 042
     Dates: start: 20110705, end: 20110907
  6. EMBOLEX [Concomitant]
     Indication: THROMBOSIS PROPHYLAXIS
     Dosage: ROUTE:SUBCUTANEOUS 1DF=3000 I.E
     Route: 030
     Dates: start: 20110110, end: 20120112
  7. CERTOPARIN SODIUM [Concomitant]
     Route: 030
     Dates: start: 20110110
  8. OXAZEPAM [Concomitant]
     Dates: start: 20110110

REACTIONS (7)
  - GAMMA-GLUTAMYLTRANSFERASE INCREASED [None]
  - ABDOMINAL PAIN [None]
  - BLOOD BILIRUBIN INCREASED [None]
  - ASPARTATE AMINOTRANSFERASE INCREASED [None]
  - BLOOD LACTATE DEHYDROGENASE INCREASED [None]
  - C-REACTIVE PROTEIN INCREASED [None]
  - ALANINE AMINOTRANSFERASE INCREASED [None]
